FAERS Safety Report 9752618 (Version 1)
Quarter: 2013Q4

REPORT INFORMATION
  Report Type: Spontaneous
  Country: US (occurrence: None)
  Receive Date: 20131212
  Receipt Date: 20131212
  Transmission Date: 20140711
  Serious: No
  Sender: FDA-Public Use
  Company Number: None

PATIENT
  Age: 68 None
  Sex: Female

DRUGS (18)
  1. NOVOLOG MIX 70/30 FLEX PEN PREFILLED SYRING [Suspect]
     Indication: DIABETES MELLITUS
     Dosage: 10 UNITS TWICE DIALY 15 UNITS AT BED TIME BY INJECTION
     Dates: end: 201312
  2. ALPRAZOLAM [Concomitant]
  3. GABAPENTIN [Concomitant]
  4. RESTASIS [Concomitant]
  5. NEXIUM [Concomitant]
  6. RANITIDINE [Concomitant]
  7. VALSARTAN [Concomitant]
  8. MONTELUKAST [Concomitant]
  9. FLUTICASONE [Concomitant]
  10. CYCLOBENZAPRIN [Concomitant]
  11. OXYCODONE [Concomitant]
  12. CETIRIZINE [Concomitant]
  13. POLYETHYLENE [Concomitant]
  14. VITMAIN B COMPLEX [Concomitant]
  15. VITAMIN D [Concomitant]
  16. VITAMIN E [Concomitant]
  17. ASPIRIN [Concomitant]
  18. CALCIUM PILL [Concomitant]

REACTIONS (3)
  - Product quality issue [None]
  - Product contamination physical [None]
  - Product contamination physical [None]
